FAERS Safety Report 9680694 (Version 1)
Quarter: 2013Q4

REPORT INFORMATION
  Report Type: Spontaneous
  Country: FR (occurrence: FR)
  Receive Date: 20131111
  Receipt Date: 20131111
  Transmission Date: 20140711
  Serious: Yes (Hospitalization)
  Sender: FDA-Public Use
  Company Number: FR-JNJFOC-20131100957

PATIENT
  Age: 43 Year
  Sex: Female
  Weight: 90 kg

DRUGS (3)
  1. HALDOL DECANOAS [Suspect]
     Indication: PRODUCT USED FOR UNKNOWN INDICATION
     Route: 030
     Dates: end: 20110822
  2. TERCIAN [Suspect]
     Indication: PRODUCT USED FOR UNKNOWN INDICATION
     Dosage: 2 DOSES
     Route: 048
     Dates: end: 20110907
  3. STILNOX [Suspect]
     Indication: PRODUCT USED FOR UNKNOWN INDICATION
     Dosage: 1 DOSE
     Route: 048
     Dates: end: 20110907

REACTIONS (3)
  - Neuroleptic malignant syndrome [Recovered/Resolved]
  - Liver injury [Recovered/Resolved]
  - Extrapyramidal disorder [Recovered/Resolved]
